FAERS Safety Report 9142507 (Version 2)
Quarter: 2013Q2

REPORT INFORMATION
  Report Type: Spontaneous
  Country: FR (occurrence: FR)
  Receive Date: 20130306
  Receipt Date: 20130405
  Transmission Date: 20140414
  Serious: Yes (Life-Threatening)
  Sender: FDA-Public Use
  Company Number: FR-009507513-2007-158716-NL

PATIENT
  Age: 31 Year
  Sex: Female
  Weight: 55 kg

DRUGS (4)
  1. PUREGON [Suspect]
     Indication: IN VITRO FERTILISATION
     Dosage: 150 IU, QD
     Route: 058
     Dates: start: 20070111, end: 20070119
  2. PUREGON [Suspect]
     Dosage: CONTINUING: NO
     Route: 058
     Dates: end: 20070119
  3. ORGALUTRAN [Suspect]
     Indication: IN VITRO FERTILISATION
     Dosage: 0.25 MG, QD
     Route: 058
     Dates: start: 20070116, end: 20070119
  4. OVITRELLE [Suspect]
     Indication: IN VITRO FERTILISATION
     Dosage: 250 MG, ONCE
     Route: 058
     Dates: start: 20070120, end: 20070120

REACTIONS (1)
  - Deep vein thrombosis [Not Recovered/Not Resolved]
